FAERS Safety Report 24586619 (Version 1)
Quarter: 2024Q4

REPORT INFORMATION
  Report Type: Report from Study
  Country: US (occurrence: US)
  Receive Date: 20241107
  Receipt Date: 20241107
  Transmission Date: 20250115
  Serious: Yes (Other)
  Sender: ABBVIE
  Company Number: US-ABBVIE-5987027

PATIENT
  Age: 60 Year
  Sex: Male

DRUGS (4)
  1. SKYRIZI [Suspect]
     Active Substance: RISANKIZUMAB-RZAA
     Indication: Psoriasis
     Dosage: AT WEEK 0,?STRENGTH: 150MG/ML
     Route: 058
     Dates: start: 20240406, end: 20240406
  2. SKYRIZI [Suspect]
     Active Substance: RISANKIZUMAB-RZAA
     Dosage: AT WEEK 4,?STRENGTH: 150MG/ML
     Route: 058
     Dates: start: 20240504, end: 20240504
  3. SKYRIZI [Suspect]
     Active Substance: RISANKIZUMAB-RZAA
     Dosage: AT WEEK 16,?STRENGTH: 150MG/ML
     Route: 058
     Dates: start: 20240727, end: 20240727
  4. SKYRIZI [Suspect]
     Active Substance: RISANKIZUMAB-RZAA
     Dosage: AT WEEK 28,?STRENGTH: 150MG/ML
     Route: 058
     Dates: start: 20241019

REACTIONS (2)
  - Plantar fasciitis [Unknown]
  - Prostatitis [Unknown]

NARRATIVE: CASE EVENT DATE: 20240101
